FAERS Safety Report 4536557-X (Version None)
Quarter: 2004Q4

REPORT INFORMATION
  Report Type: 
  Country: None (occurrence: None)
  Receive Date: 20041220
  Receipt Date: 20041207
  Transmission Date: 20050328
  Serious: Yes (Hospitalization)
  Sender: FDA-Public Use
  Company Number: 2004053598

PATIENT
  Sex: Male

DRUGS (7)
  1. LIPITOR [Suspect]
     Indication: DYSLIPIDAEMIA
     Dosage: 20 MG (20 MG, 1 IN 1 D), ORAL
     Route: 048
     Dates: start: 20020812
  2. CITALOR (ATORVASTATIN) [Suspect]
     Indication: ILL-DEFINED DISORDER
     Dosage: 20 MG (20 MG, 1 IN 1 D)
     Dates: start: 20030101, end: 20030101
  3. ASPIRIN [Concomitant]
  4. CAPTOPRIL [Concomitant]
  5. NIFEDIPINE [Concomitant]
  6. ISOSORBIDE MONONITRATE [Concomitant]
  7. ATENOLOL [Concomitant]

REACTIONS (2)
  - CORONARY ARTERY SURGERY [None]
  - VENOUS OCCLUSION [None]
